FAERS Safety Report 5262876-8 (Version None)
Quarter: 2007Q1

REPORT INFORMATION
  Report Type: 
  Country: None (occurrence: None)
  Receive Date: 20070312
  Receipt Date: 20070228
  Transmission Date: 20070707
  Serious: Yes (Other)
  Sender: FDA-Public Use
  Company Number: GB-NOVOPROD-261245

PATIENT
  Age: 42 Year
  Sex: Male

DRUGS (3)
  1. ACTRAPID [Suspect]
     Indication: DIABETES MELLITUS
     Dates: start: 20070102
  2. ACETAMINOPHEN [Concomitant]
  3. HUMALOG                            /00030501/ [Concomitant]

REACTIONS (2)
  - CHEST PAIN [None]
  - DYSPNOEA [None]
